FAERS Safety Report 4477255-0 (Version None)
Quarter: 2004Q4

REPORT INFORMATION
  Report Type: 
  Country: None (occurrence: None)
  Receive Date: 20041018
  Receipt Date: 20031229
  Transmission Date: 20050328
  Serious: No
  Sender: FDA-Public Use
  Company Number: US-GLAXOSMITHKLINE-A0490784A

PATIENT
  Sex: Male

DRUGS (1)
  1. CEFTIN [Suspect]
     Route: 065

REACTIONS (1)
  - DRUG INEFFECTIVE [None]
